FAERS Safety Report 13125314 (Version 3)
Quarter: 2017Q2

REPORT INFORMATION
  Report Type: Spontaneous
  Country: US (occurrence: US)
  Receive Date: 20170118
  Receipt Date: 20170419
  Transmission Date: 20170830
  Serious: Yes (Hospitalization, Other)
  Sender: FDA-Public Use
  Company Number: US-PFIZER INC-2017019999

PATIENT
  Age: 56 Year
  Sex: Male
  Weight: 112.94 kg

DRUGS (10)
  1. ZETIA [Concomitant]
     Active Substance: EZETIMIBE
     Indication: BLOOD TRIGLYCERIDES
     Dosage: 10MG TABLET ONCE AT 9 AT NIGHT
     Route: 048
     Dates: start: 2013
  2. VALIUM [Concomitant]
     Active Substance: DIAZEPAM
     Indication: STRESS
  3. LISINOPRIL AND HYDROCHLOROTHIAZIDE [Concomitant]
     Active Substance: HYDROCHLOROTHIAZIDE\LISINOPRIL
     Indication: BLOOD PRESSURE ABNORMAL
     Dosage: 10/12.5MG TABLET ONCE AT BEDTIME
     Route: 048
     Dates: start: 2009
  4. VALIUM [Concomitant]
     Active Substance: DIAZEPAM
     Indication: ANXIETY
     Dosage: 10 MG, AS NEEDED
     Route: 048
     Dates: start: 2005
  5. VALIUM [Concomitant]
     Active Substance: DIAZEPAM
     Indication: HYPERTENSION
  6. VITAMIN D [Concomitant]
     Active Substance: CHOLECALCIFEROL
     Indication: ASTHENIA
     Dosage: 50,000 UNITS GEL TABLET ONCE A WEEK
     Route: 048
     Dates: start: 2009
  7. VIAGRA [Suspect]
     Active Substance: SILDENAFIL CITRATE
     Indication: ERECTILE DYSFUNCTION
     Dosage: 100 MG, AS NEEDED (WHEN NEEDED)
     Dates: start: 2004
  8. LORTAB [Concomitant]
     Active Substance: ACETAMINOPHEN\HYDROCODONE BITARTRATE
     Indication: PAIN
     Dosage: 7.5 MG TABLET, AS NEEDED
     Route: 048
     Dates: start: 2014
  9. MELOXICAM. [Concomitant]
     Active Substance: MELOXICAM
     Indication: ARTHRITIS
     Dosage: 15 MG TABLET, 1X/DAY
     Route: 048
     Dates: start: 2009
  10. METOPROLOL SUCCINATE. [Concomitant]
     Active Substance: METOPROLOL SUCCINATE
     Indication: BLOOD PRESSURE ABNORMAL
     Dosage: 50MG TABLET AT BEDTIME
     Route: 048
     Dates: start: 2009

REACTIONS (3)
  - Arthritis infective [Not Recovered/Not Resolved]
  - Pain [Not Recovered/Not Resolved]
  - Muscle rupture [Not Recovered/Not Resolved]

NARRATIVE: CASE EVENT DATE: 20170111
